FAERS Safety Report 7601584-2 (Version None)
Quarter: 2011Q3

REPORT INFORMATION
  Report Type: 
  Country: None (occurrence: None)
  Receive Date: 20110711
  Receipt Date: 20110628
  Transmission Date: 20111222
  Serious: Yes (Other)
  Sender: FDA-Public Use
  Company Number: PHHY2011DE43291

PATIENT
  Sex: Male

DRUGS (1)
  1. EXTAVIA [Suspect]
     Indication: MULTIPLE SCLEROSIS
     Dosage: 250 UG, EVERY OTHER DAY
     Route: 058
     Dates: start: 20110318

REACTIONS (4)
  - VISUAL IMPAIRMENT [None]
  - VISUAL FIELD DEFECT [None]
  - OPTIC NEURITIS [None]
  - DIABETES MELLITUS [None]
